FAERS Safety Report 14127660 (Version 5)
Quarter: 2019Q4

REPORT INFORMATION
  Report Type: Report from Study
  Country: FR (occurrence: FR)
  Receive Date: 20171026
  Receipt Date: 20191122
  Transmission Date: 20200122
  Serious: Yes (Life-Threatening, Hospitalization, Other)
  Sender: FDA-Public Use
  Company Number: PHHY2017FR155094

PATIENT
  Age: 69 Year
  Sex: Male
  Weight: 69 kg

DRUGS (8)
  1. AFINITOR [Suspect]
     Active Substance: EVEROLIMUS
     Indication: PANCREATIC NEUROENDOCRINE TUMOUR METASTATIC
     Dosage: 10 MG, QD
     Route: 065
     Dates: start: 20160111, end: 20170909
  2. DIAZOXIDE [Concomitant]
     Active Substance: DIAZOXIDE
     Indication: SECRETION DISCHARGE
     Dosage: UNK
     Route: 065
     Dates: start: 20160111
  3. SPECIAFOLDINE [Concomitant]
     Active Substance: FOLIC ACID
     Indication: ANAEMIA
     Dosage: UNK
     Route: 048
     Dates: start: 20170801
  4. ELOXATIN [Concomitant]
     Active Substance: OXALIPLATIN
     Indication: PRODUCT USED FOR UNKNOWN INDICATION
     Dosage: UNK
     Route: 065
     Dates: start: 20170919, end: 20171213
  5. OXYCONTIN [Concomitant]
     Active Substance: OXYCODONE HYDROCHLORIDE
     Indication: PAIN
     Dosage: UNK
     Route: 048
     Dates: start: 20150615
  6. ESIDREX [Concomitant]
     Active Substance: HYDROCHLOROTHIAZIDE
     Indication: OEDEMA PERIPHERAL
     Dosage: 25 MG
     Route: 048
     Dates: start: 20151027
  7. LANREOTIDE [Concomitant]
     Active Substance: LANREOTIDE
     Indication: PRODUCT USED FOR UNKNOWN INDICATION
     Dosage: 120 MG, QMO
     Route: 065
     Dates: start: 20150914
  8. INNOHEP [Concomitant]
     Active Substance: TINZAPARIN SODIUM
     Indication: VENOUS THROMBOSIS
     Dosage: UNK
     Route: 058
     Dates: start: 20151017

REACTIONS (8)
  - Intestinal obstruction [Recovered/Resolved]
  - Hyperglycaemia [Recovered/Resolved]
  - Pneumonia aspiration [Recovered/Resolved]
  - Tumour associated fever [Recovered/Resolved]
  - Hyperthermia [Unknown]
  - Hypoglycaemia [Recovered/Resolved]
  - Respiratory distress [Unknown]
  - Faecal vomiting [Unknown]

NARRATIVE: CASE EVENT DATE: 20160905
